FAERS Safety Report 9040042 (Version 1)
Quarter: 2013Q1

REPORT INFORMATION
  Report Type: Report from Study
  Country: US (occurrence: US)
  Receive Date: 20130130
  Receipt Date: 20130130
  Transmission Date: 20140127
  Serious: No
  Sender: FDA-Public Use
  Company Number: US-ABBOTT-12P-163-0950741-00

PATIENT
  Age: 42 Year
  Sex: Female

DRUGS (11)
  1. HUMIRA 40 MG/0.8 ML PEN [Suspect]
     Indication: CROHN^S DISEASE
     Dosage: LOADING DOSE
     Dates: start: 20120614
  2. LOPERAMIDE [Concomitant]
     Indication: ILL-DEFINED DISORDER
     Dosage: TITRATED
  3. CITALOPRAM [Concomitant]
     Indication: DEPRESSION
     Dosage: DAILY
  4. CITALOPRAM [Concomitant]
     Indication: ANXIETY
  5. TRAMADOL ER [Concomitant]
     Indication: PAIN
     Dosage: EVERY DAY
  6. VIVELLE [Concomitant]
     Indication: HORMONE REPLACEMENT THERAPY
     Dosage: HORMONE PATCH CHANGED 2 TIMES A WEEK
  7. IMODIUM [Concomitant]
     Indication: PRODUCT USED FOR UNKNOWN INDICATION
     Dosage: 2-4 TIMES A DAY
  8. HYDROCODONE [Concomitant]
     Indication: PAIN
     Dosage: 10-500 MG
  9. DEXILANT [Concomitant]
     Indication: GASTROOESOPHAGEAL REFLUX DISEASE
     Dosage: EVERY DAY
  10. MULTIVITAMIN [Concomitant]
     Indication: SUPPLEMENTATION THERAPY
     Dosage: EVERY DAY
  11. VITAMIN D [Concomitant]
     Indication: SUPPLEMENTATION THERAPY
     Dosage: EVERY DAY

REACTIONS (2)
  - Anal fissure [Unknown]
  - Dyspepsia [Unknown]
